FAERS Safety Report 16062304 (Version 1)
Quarter: 2019Q1

REPORT INFORMATION
  Report Type: Spontaneous
  Country: NL (occurrence: NL)
  Receive Date: 20190312
  Receipt Date: 20190312
  Transmission Date: 20190418
  Serious: Yes (Hospitalization)
  Sender: FDA-Public Use
  Company Number: NL-TERSERA THERAPEUTICS LLC-2019TRS000163

PATIENT

DRUGS (3)
  1. ZOLADEX [Suspect]
     Active Substance: GOSERELIN ACETATE
     Dosage: 10.8 MG, 10.8 IMPLANT ROD
     Route: 058
     Dates: start: 20190226
  2. ZOLADEX [Suspect]
     Active Substance: GOSERELIN ACETATE
     Dosage: 10.8 MG, 10.8 IMPLANT ROD
     Route: 058
     Dates: start: 20181126
  3. ZOLADEX [Suspect]
     Active Substance: GOSERELIN ACETATE
     Indication: PROSTATE CANCER
     Dosage: 10.8 MG,10.8 IMPLANT ROD
     Route: 058
     Dates: start: 20180301

REACTIONS (3)
  - Respiratory tract infection [Recovering/Resolving]
  - Hot flush [Not Recovered/Not Resolved]
  - Pneumonia [Unknown]

NARRATIVE: CASE EVENT DATE: 20181115
